FAERS Safety Report 14383118 (Version 1)
Quarter: 2018Q1

REPORT INFORMATION
  Report Type: Report from Study
  Country: IL (occurrence: IL)
  Receive Date: 20180115
  Receipt Date: 20180115
  Transmission Date: 20180509
  Serious: Yes (Hospitalization)
  Sender: FDA-Public Use
  Company Number: IL-ROCHE-2054879

PATIENT
  Age: 20 Year
  Sex: Male

DRUGS (2)
  1. BEVACIZUMAB. [Suspect]
     Active Substance: BEVACIZUMAB
     Indication: GLIOBLASTOMA
     Route: 065
  2. CANNABIS [Concomitant]
     Active Substance: CANNABIS SATIVA SUBSP. INDICA TOP
     Dosage: DRUG REPORTED AS CONCENTRATE OF CANNABIS OIL
     Route: 065

REACTIONS (3)
  - Cerebrospinal fluid circulation disorder [Unknown]
  - Meningitis [Unknown]
  - Wound dehiscence [Unknown]
